FAERS Safety Report 5196753-8 (Version None)
Quarter: 2006Q4

REPORT INFORMATION
  Report Type: 
  Country: None (occurrence: None)
  Receive Date: 20061227
  Receipt Date: 20061212
  Transmission Date: 20070319
  Serious: Yes (Hospitalization, Other)
  Sender: FDA-Public Use
  Company Number: 2006153129

PATIENT
  Age: 55 Year
  Sex: Female

DRUGS (16)
  1. LYRICA [Suspect]
     Indication: NEURALGIA
     Dosage: 100 MG (50 MG, 2 IN 1 D)
     Dates: start: 20060101
  2. EFFEXOR XR [Concomitant]
  3. ALL OTHER THERAPEUTIC PRODUCTS (ALL OTHER THERAPEUTIC PRODUCTS) [Concomitant]
  4. FUROSEMIDE [Concomitant]
  5. K-DUR 10 [Concomitant]
  6. KLONOPIN [Concomitant]
  7. LEVOTHYROXINE SODIUM [Concomitant]
  8. LIPITOR [Concomitant]
  9. NASONEX [Concomitant]
  10. OGEN [Concomitant]
  11. PREVACID [Concomitant]
  12. PRINZIDE [Concomitant]
  13. SINEMET CR [Concomitant]
  14. TEMAZEPAM [Concomitant]
  15. TRAZODONE HCL [Concomitant]
  16. VICODIN [Concomitant]

REACTIONS (4)
  - AMNESIA [None]
  - BLOOD CREATINE PHOSPHOKINASE INCREASED [None]
  - CONFUSIONAL STATE [None]
  - DRUG TOXICITY [None]
